FAERS Safety Report 9537967 (Version 1)
Quarter: 2013Q3

REPORT INFORMATION
  Report Type: Spontaneous
  Country: KR (occurrence: KR)
  Receive Date: 20130919
  Receipt Date: 20130919
  Transmission Date: 20140515
  Serious: Yes (Hospitalization, Other)
  Sender: FDA-Public Use
  Company Number: KR-WATSON-2013-16423

PATIENT
  Age: 79 Year
  Sex: Female

DRUGS (1)
  1. PREGABALIN (UNKNOWN) [Suspect]
     Indication: POST HERPETIC NEURALGIA
     Dosage: 300 MG, DAILY
     Route: 065

REACTIONS (2)
  - Stupor [Recovered/Resolved]
  - Toxic encephalopathy [Recovered/Resolved]
